FAERS Safety Report 12932871 (Version 2)
Quarter: 2016Q4

REPORT INFORMATION
  Report Type: Spontaneous
  Country: JP (occurrence: JP)
  Receive Date: 20161111
  Receipt Date: 20161130
  Transmission Date: 20170207
  Serious: Yes (Death, Hospitalization)
  Sender: FDA-Public Use
  Company Number: JP-ELI_LILLY_AND_COMPANY-JP201611000640

PATIENT
  Age: 68 Year
  Sex: Male
  Weight: 54.7 kg

DRUGS (2)
  1. CYRAMZA [Suspect]
     Active Substance: RAMUCIRUMAB
     Indication: LUNG ADENOCARCINOMA STAGE IV
     Dosage: 500 MG, OTHER
     Route: 042
     Dates: start: 20161019, end: 20161019
  2. DOCETAXEL. [Suspect]
     Active Substance: DOCETAXEL
     Indication: LUNG ADENOCARCINOMA STAGE IV
     Dosage: 80 MG, OTHER
     Route: 042
     Dates: start: 20161019, end: 20161019

REACTIONS (1)
  - Interstitial lung disease [Fatal]

NARRATIVE: CASE EVENT DATE: 20161029
